FAERS Safety Report 14367574 (Version 2)
Quarter: 2018Q2

REPORT INFORMATION
  Report Type: Other
  Country: CZ (occurrence: CZ)
  Receive Date: 20180109
  Receipt Date: 20180606
  Transmission Date: 20180711
  Serious: Yes (Other)
  Sender: FDA-Public Use
  Company Number: CZ-CELLTRION INC.-2017CZ016407

PATIENT

DRUGS (2)
  1. REMSIMA [Suspect]
     Active Substance: INFLIXIMAB
     Dosage: 100 MG
     Route: 042
     Dates: start: 20171121, end: 20171121
  2. REMSIMA [Suspect]
     Active Substance: INFLIXIMAB
     Indication: PSORIATIC ARTHROPATHY
     Dosage: 100 MG
     Route: 042
     Dates: start: 20140506, end: 20140506

REACTIONS (3)
  - Pyrexia [Unknown]
  - Bronchitis [Unknown]
  - Underdose [Unknown]
